FAERS Safety Report 9265668 (Version 1)
Quarter: 2013Q2

REPORT INFORMATION
  Report Type: Spontaneous
  Country: US (occurrence: US)
  Receive Date: 20130501
  Receipt Date: 20130501
  Transmission Date: 20140414
  Serious: No
  Sender: FDA-Public Use
  Company Number: US-TEVA-401721USA

PATIENT
  Sex: Female

DRUGS (1)
  1. AMRIX [Suspect]

REACTIONS (1)
  - Burning sensation [Unknown]
